FAERS Safety Report 9972089 (Version 1)
Quarter: 2014Q1

REPORT INFORMATION
  Report Type: Spontaneous
  Country: US (occurrence: None)
  Receive Date: 20140305
  Receipt Date: 20140305
  Transmission Date: 20141002
  Serious: Yes (Life-Threatening, Hospitalization, Disabling)
  Sender: FDA-Public Use
  Company Number: None

PATIENT
  Age: 54 Year
  Sex: Male
  Weight: 79.38 kg

DRUGS (1)
  1. JANUVIA [Suspect]
     Indication: DIABETES MELLITUS
     Dosage: 2 PILLS, TWICE DAILY, TAKEN BY MOUTH
     Route: 048
     Dates: start: 20090105, end: 20120206

REACTIONS (2)
  - Nausea [None]
  - Pancreatic neuroendocrine tumour [None]
